FAERS Safety Report 8936357 (Version 2)
Quarter: 2012Q4

REPORT INFORMATION
  Report Type: 
  Country: JP (occurrence: JP)
  Receive Date: 20121130
  Receipt Date: 20121219
  Transmission Date: 20130627
  Serious: Yes (Disabling)
  Sender: FDA-Public Use
  Company Number: JP-ELI_LILLY_AND_COMPANY-JP201211005590

PATIENT
  Sex: Male

DRUGS (1)
  1. GEMZAR [Suspect]
     Indication: BILE DUCT CANCER
     Dosage: 1610 mg, UNK
     Route: 042
     Dates: start: 20121019, end: 20121102

REACTIONS (1)
  - Injection site vasculitis [Recovering/Resolving]
